FAERS Safety Report 12697838 (Version 1)
Quarter: 2016Q3

REPORT INFORMATION
  Report Type: Report from Study
  Country: DE (occurrence: DE)
  Receive Date: 20160830
  Receipt Date: 20160830
  Transmission Date: 20161109
  Serious: Yes (Life-Threatening, Hospitalization)
  Sender: FDA-Public Use
  Company Number: DE-ROCHE-1801827

PATIENT
  Age: 77 Year
  Sex: Female

DRUGS (11)
  1. BAYOTENSIN [Concomitant]
     Route: 042
     Dates: start: 20140625
  2. BEVACIZUMAB [Suspect]
     Active Substance: BEVACIZUMAB
     Indication: OVARIAN CANCER
     Route: 065
     Dates: start: 20130904, end: 20130904
  3. CARBOPLATIN. [Concomitant]
     Active Substance: CARBOPLATIN
     Indication: OVARIAN CANCER
     Route: 065
     Dates: start: 20130814, end: 20130814
  4. CARBOPLATIN. [Concomitant]
     Active Substance: CARBOPLATIN
     Route: 065
     Dates: start: 20131127, end: 20131127
  5. BEVACIZUMAB [Suspect]
     Active Substance: BEVACIZUMAB
     Route: 065
     Dates: start: 20140827, end: 20140827
  6. CARBOPLATIN. [Concomitant]
     Active Substance: CARBOPLATIN
     Dosage: SAME DOSE ON 06/NOV/2013
     Route: 065
     Dates: start: 20130925, end: 20130925
  7. BAYOTENSIN [Concomitant]
     Indication: HYPERTENSION
     Route: 048
     Dates: start: 20140423, end: 20140423
  8. CARBOPLATIN. [Concomitant]
     Active Substance: CARBOPLATIN
     Dosage: SAME DOSE ON 16/NOV/2013
     Route: 065
     Dates: start: 20130904, end: 20130904
  9. PACLITAXEL. [Concomitant]
     Active Substance: PACLITAXEL
     Indication: OVARIAN CANCER
     Dosage: SAME DOSE ON 04/SEP/2013
     Route: 065
     Dates: start: 20130814, end: 20130814
  10. PACLITAXEL. [Concomitant]
     Active Substance: PACLITAXEL
     Dosage: SAME DOSE ON 16/OCT/2013
     Route: 065
     Dates: start: 20130925, end: 20130925
  11. PACLITAXEL. [Concomitant]
     Active Substance: PACLITAXEL
     Dosage: SAME DOSE ON 27/NOV/2013
     Route: 065
     Dates: start: 20131106, end: 20131106

REACTIONS (13)
  - Cerebral infarction [Not Recovered/Not Resolved]
  - Aspiration [Recovered/Resolved]
  - Nausea [Not Recovered/Not Resolved]
  - Dizziness [Not Recovered/Not Resolved]
  - Asphyxia [Recovered/Resolved]
  - Pneumonia aspiration [Recovered/Resolved]
  - Cardiovascular disorder [Not Recovered/Not Resolved]
  - Dysgeusia [Not Recovered/Not Resolved]
  - Memory impairment [Not Recovered/Not Resolved]
  - Hypoxia [Recovered/Resolved]
  - Haemoglobin decreased [Not Recovered/Not Resolved]
  - Paraesthesia [Not Recovered/Not Resolved]
  - Bone pain [Not Recovered/Not Resolved]

NARRATIVE: CASE EVENT DATE: 20130904
